FAERS Safety Report 20346774 (Version 1)
Quarter: 2022Q1

REPORT INFORMATION
  Report Type: Spontaneous
  Country: US (occurrence: US)
  Receive Date: 20220118
  Receipt Date: 20220118
  Transmission Date: 20220423
  Serious: No
  Sender: FDA-Public Use
  Company Number: US-CHIASMA-2021CHI00192

PATIENT
  Sex: Male

DRUGS (6)
  1. MYCAPSSA [Suspect]
     Active Substance: OCTREOTIDE
     Indication: Acromegaly
     Dosage: 40 MG PER DAY
     Route: 048
     Dates: start: 2021
  2. ALCOHOL [Suspect]
     Active Substance: ALCOHOL
     Dosage: GLASS OF WINE
  3. VITAMIN D [Concomitant]
     Active Substance: VITAMIN D NOS
  4. IRON [Concomitant]
     Active Substance: IRON
  5. VITAMINS [Concomitant]
     Active Substance: VITAMINS
  6. THYROXINE [Concomitant]
     Active Substance: LEVOTHYROXINE

REACTIONS (4)
  - Alcohol interaction [Unknown]
  - Gastrointestinal disorder [Not Recovered/Not Resolved]
  - Diarrhoea [Not Recovered/Not Resolved]
  - Abdominal pain [Not Recovered/Not Resolved]

NARRATIVE: CASE EVENT DATE: 20210101
